FAERS Safety Report 7724331-2 (Version None)
Quarter: 2011Q3

REPORT INFORMATION
  Report Type: 
  Country: None (occurrence: None)
  Receive Date: 20110901
  Receipt Date: 20110822
  Transmission Date: 20111222
  Serious: Yes (Hospitalization)
  Sender: FDA-Public Use
  Company Number: GB-TEVA-297650ISR

PATIENT
  Age: 84 Year
  Sex: Male
  Weight: 90.4 kg

DRUGS (10)
  1. LANSOPRAZOLE [Suspect]
     Dosage: 30 MG, 1X PER DAY
     Route: 065
     Dates: start: 20110801, end: 20110809
  2. TOLTERODINE TARTRATE [Concomitant]
     Route: 065
  3. BENDROFLUMETHIAZIDE [Concomitant]
     Route: 065
  4. BISOPROLOL FUMARATE [Concomitant]
     Route: 065
  5. WARFARIN SODIUM [Concomitant]
     Route: 065
  6. DIGOXIN [Concomitant]
     Route: 065
  7. ACETAMINOPHEN [Concomitant]
     Route: 065
  8. LISINOPRIL [Concomitant]
     Route: 065
  9. SIMVASTATIN [Concomitant]
     Route: 065
  10. TRAMADOL HCL [Concomitant]
     Route: 065

REACTIONS (2)
  - LIVER INJURY [None]
  - JAUNDICE [None]
